FAERS Safety Report 4686218-1 (Version None)
Quarter: 2005Q2

REPORT INFORMATION
  Report Type: 
  Country: None (occurrence: None)
  Receive Date: 20050609
  Receipt Date: 20050601
  Transmission Date: 20051028
  Serious: Yes (Death)
  Sender: FDA-Public Use
  Company Number: JP-JNJFOC-20050601533

PATIENT
  Age: 77 Year
  Sex: Female

DRUGS (4)
  1. RISPERDAL [Suspect]
     Indication: DRUG USE FOR UNKNOWN INDICATION
     Route: 049
  2. QUETIAPINE FUMARATE [Concomitant]
     Route: 049
  3. AMANTADINE HCL [Concomitant]
     Route: 049
  4. LEVOFLOXACIN [Concomitant]
     Route: 049

REACTIONS (6)
  - BLOOD PRESSURE DECREASED [None]
  - CARDIAC FAILURE [None]
  - PALLOR [None]
  - PARKINSONISM [None]
  - PYREXIA [None]
  - RENAL IMPAIRMENT [None]
